FAERS Safety Report 5689243-7 (Version None)
Quarter: 2008Q1

REPORT INFORMATION
  Report Type: 
  Country: None (occurrence: None)
  Receive Date: 20080331
  Receipt Date: 20080317
  Transmission Date: 20080703
  Serious: Yes (Hospitalization)
  Sender: FDA-Public Use
  Company Number: HU-AMGEN-UK261615

PATIENT
  Sex: Male

DRUGS (5)
  1. PANITUMUMAB [Suspect]
     Indication: COLORECTAL CANCER
     Route: 042
     Dates: start: 20070404, end: 20080114
  2. FLUOROURACIL [Suspect]
     Route: 065
     Dates: start: 20080114, end: 20080115
  3. LEUCOVORIN CALCIUM [Suspect]
     Route: 065
     Dates: start: 20080114, end: 20080115
  4. ELOXATIN (SANOFI) [Suspect]
     Route: 065
     Dates: start: 20080114, end: 20080115
  5. ZOFRAN [Concomitant]
     Route: 042
     Dates: start: 20080101

REACTIONS (1)
  - THROMBOCYTOPENIA [None]
